FAERS Safety Report 20386061 (Version 1)
Quarter: 2022Q1

REPORT INFORMATION
  Report Type: Spontaneous
  Country: US (occurrence: US)
  Receive Date: 20220127
  Receipt Date: 20220127
  Transmission Date: 20220423
  Serious: No
  Sender: FDA-Public Use
  Company Number: US-ALLERGAN-2133501US

PATIENT
  Age: 29 Year
  Sex: Female

DRUGS (1)
  1. BOTOX COSMETIC [Suspect]
     Active Substance: ONABOTULINUMTOXINA
     Indication: Muscle hypertrophy
     Dosage: 20 UNITS, SINGLE
     Dates: start: 20210923, end: 20210923

REACTIONS (4)
  - Hypoaesthesia oral [Not Recovered/Not Resolved]
  - Off label use [Unknown]
  - Injection site haematoma [Unknown]
  - Injection site swelling [Not Recovered/Not Resolved]

NARRATIVE: CASE EVENT DATE: 20210923
